FAERS Safety Report 8009574-5 (Version None)
Quarter: 2011Q4

REPORT INFORMATION
  Report Type: 
  Country: None (occurrence: None)
  Receive Date: 20111228
  Receipt Date: 20111219
  Transmission Date: 20120403
  Serious: Yes (Other)
  Sender: FDA-Public Use
  Company Number: SA-BRISTOL-MYERS SQUIBB COMPANY-16219412

PATIENT
  Age: 44 Year
  Sex: Female

DRUGS (6)
  1. PREDNISOLONE [Concomitant]
  2. METFORMIN HCL [Suspect]
     Indication: TYPE 2 DIABETES MELLITUS
     Dosage: ONE MONTH AGO
  3. CALCIUM ACETATE [Concomitant]
  4. TRAMADOL HCL [Concomitant]
     Dosage: AS NECESSARY.
  5. HYDROXYCHLOROQUINE [Concomitant]
  6. ASPIRIN [Concomitant]

REACTIONS (2)
  - ALANINE AMINOTRANSFERASE INCREASED [None]
  - HEPATOTOXICITY [None]
